FAERS Safety Report 13922374 (Version 2)
Quarter: 2017Q4

REPORT INFORMATION
  Report Type: Report from Study
  Country: JP (occurrence: JP)
  Receive Date: 20170830
  Receipt Date: 20171124
  Transmission Date: 20180320
  Serious: Yes (Death, Other)
  Sender: FDA-Public Use
  Company Number: PHHY2011JP124039

PATIENT
  Age: 7 Year
  Sex: Female
  Weight: 20 kg

DRUGS (9)
  1. ARRANON [Suspect]
     Active Substance: NELARABINE
     Dosage: 650 MG/M2, QD
     Route: 041
     Dates: start: 20080812, end: 20080816
  2. ARRANON [Suspect]
     Active Substance: NELARABINE
     Indication: T-CELL TYPE ACUTE LEUKAEMIA
     Dosage: 650 MG/M2, QD
     Route: 041
     Dates: start: 20080714, end: 20080718
  3. ARRANON [Suspect]
     Active Substance: NELARABINE
     Dosage: 650 MG/M2, QD
     Route: 041
     Dates: start: 20080902, end: 20080906
  4. PREDNISOLONE. [Concomitant]
     Active Substance: PREDNISOLONE
     Indication: NEOPLASM MALIGNANT
     Route: 048
     Dates: start: 20080710, end: 20080713
  5. METHOTREXATE. [Concomitant]
     Active Substance: METHOTREXATE
     Indication: NEOPLASM MALIGNANT
     Route: 029
     Dates: start: 20080710, end: 20080710
  6. HYDROCORTISONE SODIUM SUCCINATE [Concomitant]
     Active Substance: HYDROCORTISONE SODIUM SUCCINATE
     Indication: NEOPLASM MALIGNANT
     Route: 029
     Dates: start: 20080710, end: 20080710
  7. CYTARABINE. [Concomitant]
     Active Substance: CYTARABINE
     Indication: NEOPLASM MALIGNANT
     Route: 029
     Dates: start: 20080710, end: 20080710
  8. ETOPOSIDE. [Concomitant]
     Active Substance: ETOPOSIDE
     Indication: NEOPLASM MALIGNANT
     Dosage: 75 MG/M2,
     Route: 041
     Dates: start: 20080812, end: 20080816
  9. CYCLOPHOSPHAMIDE. [Concomitant]
     Active Substance: CYCLOPHOSPHAMIDE
     Indication: NEOPLASM MALIGNANT
     Dosage: 330 MG/M2,
     Route: 042
     Dates: start: 20080812, end: 20080816

REACTIONS (5)
  - Somnolence [Recovered/Resolved]
  - Hyperthermia [Recovered/Resolved]
  - Depressed level of consciousness [Recovered/Resolved]
  - Febrile neutropenia [Recovered/Resolved]
  - T-cell type acute leukaemia [Fatal]

NARRATIVE: CASE EVENT DATE: 20080820
